FAERS Safety Report 7142495-9 (Version None)
Quarter: 2010Q4

REPORT INFORMATION
  Report Type: 
  Country: None (occurrence: None)
  Receive Date: 20101207
  Receipt Date: 20101125
  Transmission Date: 20110411
  Serious: Yes (Death, Other)
  Sender: FDA-Public Use
  Company Number: IN-JNJFOC-20101200409

PATIENT
  Age: 13 Year
  Sex: Female

DRUGS (4)
  1. DOXORUBICIN HYDROCHLORIDE [Suspect]
     Indication: BONE SARCOMA
     Route: 065
  2. CISPLATIN [Concomitant]
     Indication: BONE SARCOMA
     Route: 065
  3. IFOSFAMIDE [Concomitant]
     Indication: BONE SARCOMA
     Route: 065
  4. ETOPOSIDE [Concomitant]
     Indication: BONE SARCOMA
     Route: 065

REACTIONS (3)
  - NEUTROPENIC SEPSIS [None]
  - OFF LABEL USE [None]
  - SHOCK [None]
